FAERS Safety Report 9080997 (Version 2)
Quarter: 2013Q2

REPORT INFORMATION
  Report Type: Spontaneous
  Country: US (occurrence: US)
  Receive Date: 20130218
  Receipt Date: 20130412
  Transmission Date: 20140414
  Serious: No
  Sender: FDA-Public Use
  Company Number: US-PFIZER INC-2013059868

PATIENT
  Age: 69 Year
  Sex: Female

DRUGS (2)
  1. CELEBREX [Suspect]
     Dosage: UNK
  2. AMPYRA [Suspect]
     Dosage: 10 MG, 2X/DAY

REACTIONS (3)
  - Malaise [Not Recovered/Not Resolved]
  - Inflammation [Unknown]
  - Pain [Unknown]
